FAERS Safety Report 5205965-6 (Version None)
Quarter: 2006Q4

REPORT INFORMATION
  Report Type: 
  Country: None (occurrence: None)
  Receive Date: 20061027
  Receipt Date: 20060712
  Transmission Date: 20070319
  Serious: No
  Sender: FDA-Public Use
  Company Number: 200615946US

PATIENT
  Age: 26 Year
  Sex: Female
  Weight: 58.18 kg

DRUGS (4)
  1. KETEK [Suspect]
     Indication: SINUSITIS
     Dosage: 400 MG BID PO
     Route: 048
     Dates: start: 20060601, end: 20060601
  2. ETHINYL ESTRADIOL TAB [Concomitant]
  3. DROSPIRENONE (YASMIN) [Concomitant]
  4. PARACETAMOL (TYLENOL) [Concomitant]

REACTIONS (12)
  - ABDOMINAL PAIN [None]
  - CARDIAC FLUTTER [None]
  - CHILLS [None]
  - CHROMATURIA [None]
  - DIARRHOEA [None]
  - FATIGUE [None]
  - HEART RATE INCREASED [None]
  - INFLUENZA LIKE ILLNESS [None]
  - MALAISE [None]
  - NAUSEA [None]
  - PAIN [None]
  - PALPITATIONS [None]
